FAERS Safety Report 6614577-9 (Version None)
Quarter: 2010Q1

REPORT INFORMATION
  Report Type: 
  Country: None (occurrence: None)
  Receive Date: 20100304
  Receipt Date: 20100304
  Transmission Date: 20100710
  Serious: No
  Sender: FDA-Public Use
  Company Number: None

PATIENT
  Age: 85 Year
  Sex: Male
  Weight: 83.9154 kg

DRUGS (2)
  1. LEVAQUIN [Suspect]
     Indication: PNEUMONIA
     Dosage: 500 MG CAP ONE A DAY 14 DAYS PO
     Route: 048
     Dates: start: 20091018, end: 20091118
  2. LEVAQUIN [Suspect]
     Dosage: 750MG CAP ONE A DAY 5 DAYS PO
     Route: 048

REACTIONS (3)
  - HAEMORRHAGE [None]
  - OEDEMA PERIPHERAL [None]
  - TENDON RUPTURE [None]
